FAERS Safety Report 18300541 (Version 6)
Quarter: 2025Q4

REPORT INFORMATION
  Report Type: Report from Study
  Country: US (occurrence: US)
  Receive Date: 20200923
  Receipt Date: 20251001
  Transmission Date: 20260118
  Serious: Yes (Other)
  Sender: INCYTE
  Company Number: US-INCYTE CORPORATION-2020IN008140

PATIENT
  Age: 78 Year

DRUGS (9)
  1. JAKAFI [Suspect]
     Active Substance: RUXOLITINIB
     Indication: Myelofibrosis
     Dosage: 10 MILLIGRAM, BID
  2. JAKAFI [Suspect]
     Active Substance: RUXOLITINIB
     Indication: Polycythaemia vera
     Dosage: 10 MILLIGRAM, BID
  3. JAKAFI [Suspect]
     Active Substance: RUXOLITINIB
     Dosage: 5 MILLIGRAM, TWICE A DAY
  4. JAKAFI [Suspect]
     Active Substance: RUXOLITINIB
     Dosage: 5 MILLIGRAM, QD
  5. JAKAFI [Suspect]
     Active Substance: RUXOLITINIB
     Dosage: 5 MILLIGRAM, BID
  6. JAKAFI [Suspect]
     Active Substance: RUXOLITINIB
     Dosage: 5 MILLIGRAM, QD
  7. JAKAFI [Suspect]
     Active Substance: RUXOLITINIB
     Dosage: UNK, BID
     Route: 065
  8. FERRITIN [Suspect]
     Active Substance: FERRITIN
     Indication: Blood iron increased
     Dosage: UNK
     Route: 065
  9. POTASSIUM CITRATE [Concomitant]
     Active Substance: POTASSIUM CITRATE
     Indication: Product used for unknown indication
     Dosage: UNK
     Route: 065

REACTIONS (20)
  - Anaemia [Unknown]
  - Condition aggravated [Unknown]
  - Asthenia [Unknown]
  - Palpitations [Unknown]
  - Alopecia [Unknown]
  - Limb discomfort [Unknown]
  - Muscular weakness [Unknown]
  - Feeling abnormal [Unknown]
  - Fatigue [Unknown]
  - Temperature intolerance [Unknown]
  - Ill-defined disorder [Unknown]
  - Gait disturbance [Unknown]
  - Pain in extremity [Recovering/Resolving]
  - Arthralgia [Recovering/Resolving]
  - Night sweats [Unknown]
  - Spleen palpable [Unknown]
  - Product availability issue [Unknown]
  - Serum ferritin increased [Not Recovered/Not Resolved]
  - Flatulence [Unknown]
  - Muscle spasms [Unknown]
